FAERS Safety Report 5957327-1 (Version None)
Quarter: 2008Q4

REPORT INFORMATION
  Report Type: 
  Country: None (occurrence: None)
  Receive Date: 20081106
  Receipt Date: 20071005
  Transmission Date: 20090506
  Serious: Yes (Other)
  Sender: FDA-Public Use
  Company Number: US200710001621

PATIENT
  Age: 40 Year
  Sex: Male

DRUGS (3)
  1. PROZAC [Suspect]
  2. BUPROPION HYDROCHLORIDE [Concomitant]
  3. LORAZEPAM [Concomitant]

REACTIONS (7)
  - CRYING [None]
  - DEPRESSED MOOD [None]
  - DEPRESSION [None]
  - DRUG INEFFECTIVE [None]
  - INSOMNIA [None]
  - SUICIDAL IDEATION [None]
  - SUICIDE ATTEMPT [None]
